FAERS Safety Report 5066986-X (Version None)
Quarter: 2006Q3

REPORT INFORMATION
  Report Type: 
  Country: None (occurrence: None)
  Receive Date: 20060713
  Receipt Date: 20060215
  Transmission Date: 20061208
  Serious: Yes (Other)
  Sender: FDA-Public Use
  Company Number: 248148

PATIENT
  Sex: Female

DRUGS (5)
  1. ACTIVELLA [Suspect]
     Indication: HORMONE REPLACEMENT THERAPY
     Dosage: ORAL
     Route: 048
     Dates: start: 20020301, end: 20031101
  2. PREFEST [Suspect]
     Indication: HORMONE REPLACEMENT THERAPY
     Dates: start: 20000401, end: 20001001
  3. PREFEST [Suspect]
     Indication: HORMONE REPLACEMENT THERAPY
     Dates: start: 20010401, end: 20020401
  4. PREMARIN [Suspect]
     Indication: HORMONE REPLACEMENT THERAPY
     Dates: start: 19930201, end: 19990101
  5. PROVERA [Suspect]
     Indication: HORMONE REPLACEMENT THERAPY
     Dates: start: 19930201, end: 19990101

REACTIONS (1)
  - BREAST CANCER [None]
